FAERS Safety Report 7018443-9 (Version None)
Quarter: 2010Q3

REPORT INFORMATION
  Report Type: 
  Country: None (occurrence: None)
  Receive Date: 20100924
  Receipt Date: 20100910
  Transmission Date: 20110219
  Serious: Yes (Hospitalization, Other)
  Sender: FDA-Public Use
  Company Number: 2009S1002731

PATIENT
  Age: 61 Year
  Sex: Female
  Weight: 58.514 kg

DRUGS (10)
  1. PHOSPHOSODA FLAVOR NOT SPECIFIED [Suspect]
     Indication: COLONOSCOPY
     Dosage: 90 ML; TOTAL; PO
     Route: 048
     Dates: start: 20070501, end: 20070501
  2. METFORMIN HCL [Concomitant]
  3. CALCIUM [Concomitant]
  4. ACTONEL [Concomitant]
  5. ASPIRIN [Concomitant]
  6. LISINOPRIL [Concomitant]
  7. TRIAZOLAM [Concomitant]
  8. MELOXICAM [Concomitant]
  9. PANCREASE [Concomitant]
  10. IPRATROPIUM BROMIDE W/SALBUTAMOL [Concomitant]

REACTIONS (5)
  - DEHYDRATION [None]
  - DIALYSIS [None]
  - HYPOVOLAEMIA [None]
  - RENAL FAILURE [None]
  - RENAL FAILURE ACUTE [None]
